FAERS Safety Report 16846488 (Version 1)
Quarter: 2019Q3

REPORT INFORMATION
  Report Type: Spontaneous
  Country: DK (occurrence: DK)
  Receive Date: 20190924
  Receipt Date: 20190924
  Transmission Date: 20191005
  Serious: Yes (Hospitalization, Other)
  Sender: FDA-Public Use
  Company Number: DK-ASTRAZENECA-2019SF31765

PATIENT
  Age: 67 Year
  Sex: Female

DRUGS (11)
  1. SYMBICORT [Suspect]
     Active Substance: BUDESONIDE\FORMOTEROL FUMARATE DIHYDRATE
     Dosage: UNKNOWN UNKNOWN
     Route: 055
  2. METOPROLOL TARTRATE. [Interacting]
     Active Substance: METOPROLOL TARTRATE
     Dosage: UNK
     Route: 048
     Dates: start: 20171027
  3. ISOPTIN [Interacting]
     Active Substance: VERAPAMIL HYDROCHLORIDE
     Route: 048
  4. ISOPTIN [Interacting]
     Active Substance: VERAPAMIL HYDROCHLORIDE
     Dosage: UNK
     Route: 048
     Dates: start: 20171027
  5. ALPRAZOLAM. [Interacting]
     Active Substance: ALPRAZOLAM
     Route: 048
  6. PRADAXA [Interacting]
     Active Substance: DABIGATRAN ETEXILATE MESYLATE
     Route: 048
  7. ZOLPIDEM [Interacting]
     Active Substance: ZOLPIDEM TARTRATE
     Route: 048
  8. METOPROLOL TARTRATE. [Interacting]
     Active Substance: METOPROLOL TARTRATE
     Route: 048
  9. SIFROL [Interacting]
     Active Substance: PRAMIPEXOLE
     Route: 048
  10. SIMVASTATIN. [Interacting]
     Active Substance: SIMVASTATIN
     Route: 048
  11. VITAMIN D [Interacting]
     Active Substance: VITAMIN D NOS
     Route: 048

REACTIONS (9)
  - Dizziness [Unknown]
  - Malaise [Unknown]
  - Blood pressure abnormal [Unknown]
  - Nausea [Unknown]
  - Drug interaction [Unknown]
  - Chest discomfort [Unknown]
  - Tremor [Unknown]
  - Atrial fibrillation [Unknown]
  - Abdominal pain [Unknown]
